FAERS Safety Report 15092829 (Version 1)
Quarter: 2018Q2

REPORT INFORMATION
  Report Type: Spontaneous
  Country: US (occurrence: US)
  Receive Date: 20180629
  Receipt Date: 20180629
  Transmission Date: 20180711
  Serious: No
  Sender: FDA-Public Use
  Company Number: US-009507513-1806USA010533

PATIENT
  Age: 16 Year
  Sex: Female
  Weight: 80.27 kg

DRUGS (1)
  1. NEXPLANON [Suspect]
     Active Substance: ETONOGESTREL
     Dosage: UNK
     Route: 059
     Dates: start: 20160428

REACTIONS (2)
  - Complication associated with device [Not Recovered/Not Resolved]
  - Implant site pustules [Unknown]

NARRATIVE: CASE EVENT DATE: 20160528
